FAERS Safety Report 18260544 (Version 1)
Quarter: 2020Q3

REPORT INFORMATION
  Report Type: Spontaneous
  Country: NL (occurrence: NL)
  Receive Date: 20200914
  Receipt Date: 20200914
  Transmission Date: 20201103
  Serious: Yes (Other)
  Sender: FDA-Public Use
  Company Number: NL-TEVA-2020-NL-1825578

PATIENT
  Sex: Female
  Weight: 50 kg

DRUGS (1)
  1. ETHINYLESTRADIOL/LEVONORGESTREL TABLET 30/150UG / BRAND NAME NOT SPECI [Suspect]
     Active Substance: ETHINYL ESTRADIOL\LEVONORGESTREL
     Indication: DYSMENORRHOEA
     Dosage: 1 DOSAGE FORMS DAILY;  AT LEAST 3 WEEKS IN A ROW. THEN STOP WEEK
     Dates: start: 201705, end: 20190915

REACTIONS (3)
  - Suicidal ideation [Unknown]
  - Nausea [Recovered/Resolved]
  - Depressed mood [Recovered/Resolved]
